FAERS Safety Report 20159474 (Version 2)
Quarter: 2021Q4

REPORT INFORMATION
  Report Type: Spontaneous
  Country: US (occurrence: US)
  Receive Date: 20211208
  Receipt Date: 20211218
  Transmission Date: 20220303
  Serious: No
  Sender: FDA-Public Use
  Company Number: US-SA-SAC20211203000120

PATIENT
  Age: 55 Year
  Sex: Female

DRUGS (1)
  1. DUPIXENT [Suspect]
     Active Substance: DUPILUMAB
     Indication: Dermatitis atopic
     Dosage: UNK
     Dates: start: 20211130

REACTIONS (3)
  - Skin haemorrhage [Unknown]
  - Injury associated with device [Unknown]
  - Device issue [Unknown]

NARRATIVE: CASE EVENT DATE: 20211130
